FAERS Safety Report 16410655 (Version 1)
Quarter: 2019Q3

REPORT INFORMATION
  Report Type: Spontaneous
  Country: US (occurrence: US)
  Receive Date: 20190607
  Receipt Date: 20190607
  Transmission Date: 20191004
  Serious: Yes (Life-Threatening, Hospitalization)
  Sender: FDA-Public Use
  Company Number: None

PATIENT
  Age: 52 Year
  Sex: Female
  Weight: 83.25 kg

DRUGS (2)
  1. COPPERTONE ULTRAGUARD SPF 30 [Suspect]
     Active Substance: AVOBENZONE\HOMOSALATE\OCTISALATE\OCTOCRYLENE
     Indication: SUNBURN
     Dosage: ?          OTHER STRENGTH:DROPS;QUANTITY:1 8 FL. OZ;OTHER FREQUENCY:APPLY IN SUN;?
     Route: 061
     Dates: start: 20190527, end: 20190606
  2. COPPERTONE ULTRAGUARD SPF 30 [Suspect]
     Active Substance: AVOBENZONE\HOMOSALATE\OCTISALATE\OCTOCRYLENE
     Indication: PROPHYLAXIS
     Dosage: ?          OTHER STRENGTH:DROPS;QUANTITY:1 8 FL. OZ;OTHER FREQUENCY:APPLY IN SUN;?
     Route: 061
     Dates: start: 20190527, end: 20190606

REACTIONS (6)
  - Seizure [None]
  - Pruritus [None]
  - Cardiac arrest [None]
  - Respiratory arrest [None]
  - Burning sensation [None]
  - Generalised erythema [None]

NARRATIVE: CASE EVENT DATE: 20190606
